FAERS Safety Report 8549967-0 (Version None)
Quarter: 2012Q3

REPORT INFORMATION
  Report Type: 
  Country: None (occurrence: None)
  Receive Date: 20120730
  Receipt Date: 20120720
  Transmission Date: 20120928
  Serious: Yes (Life-Threatening, Hospitalization)
  Sender: FDA-Public Use
  Company Number: US-BAYER-201038707NA

PATIENT
  Age: 31 Year
  Sex: Female
  Weight: 77.098 kg

DRUGS (18)
  1. LEVAQUIN [Concomitant]
     Dosage: 500 MG, UNK
     Route: 048
     Dates: start: 20100415
  2. YAZ [Suspect]
     Dosage: UNK
     Dates: start: 20091117, end: 20100417
  3. DROSPIRENONE AND ETHINYL ESTRADIOL [Suspect]
     Indication: ACNE
     Dosage: UNK
     Route: 048
     Dates: start: 20080910, end: 20090827
  4. CITALOPRAM HYDROBROMIDE [Concomitant]
     Dosage: 20 MG, PO
     Route: 048
     Dates: start: 20100303
  5. ROCEPHIN [Concomitant]
  6. SUMATRIPTAN [Concomitant]
     Indication: MIGRAINE
     Dosage: 100 MG, UNK
     Route: 048
     Dates: start: 20100111, end: 20100326
  7. XANAX [Concomitant]
  8. HYDROCODONE BITARTRATE + ACETAMINOPHEN [Concomitant]
     Dosage: 500MG/5 MG
     Route: 048
     Dates: start: 20100416
  9. IMITREX [Concomitant]
  10. VICODIN [Concomitant]
  11. TORADOL [Concomitant]
  12. YAZ [Suspect]
     Indication: ACNE
     Dosage: UNK
     Route: 048
     Dates: start: 20080414, end: 20080813
  13. PREDNISONE [Concomitant]
     Dosage: 20 MG, OD
     Route: 048
     Dates: start: 20100113
  14. ALPRAZOLAM [Concomitant]
     Dosage: 25 MG, UNK
     Route: 048
     Dates: start: 20100305
  15. DURAGESIC-100 [Concomitant]
     Route: 061
  16. ALBUTEROL [Concomitant]
  17. CITALOPRAM HYDROBROMIDE [Concomitant]
  18. ZOFRAN [Concomitant]

REACTIONS (4)
  - MIGRAINE [None]
  - PAIN [None]
  - VIITH NERVE PARALYSIS [None]
  - PULMONARY EMBOLISM [None]
